FAERS Safety Report 19240796 (Version 2)
Quarter: 2023Q2

REPORT INFORMATION
  Report Type: Report from Study
  Country: GB (occurrence: GB)
  Receive Date: 20210511
  Receipt Date: 20230629
  Transmission Date: 20230722
  Serious: Yes (Death, Other)
  Sender: FDA-Public Use
  Company Number: GB-EMA-DD-20180326-DPRABHAKAR9P-173148

PATIENT
  Age: 57 Year
  Sex: Male

DRUGS (6)
  1. MELPHALAN [Suspect]
     Active Substance: MELPHALAN
     Indication: Bone marrow conditioning regimen
     Dosage: UNK
     Route: 065
  2. MELPHALAN [Suspect]
     Active Substance: MELPHALAN
     Indication: Acute myeloid leukaemia
     Dosage: REDUCED INTENSITY CONDITIONING CHEMOTHERAPY
     Route: 065
  3. ALEMTUZUMAB [Suspect]
     Active Substance: ALEMTUZUMAB
     Indication: Product used for unknown indication
     Dosage: 10 MILLIGRAM, ONCE A DAY, QD FROM DAY 3 TO DAY 7)
     Route: 042
  4. FLUDARABINE [Suspect]
     Active Substance: FLUDARABINE PHOSPHATE
     Indication: Bone marrow conditioning regimen
     Dosage: UNK
     Route: 065
  5. FLUDARABINE [Suspect]
     Active Substance: FLUDARABINE PHOSPHATE
     Indication: Acute myeloid leukaemia
     Dosage: REDUCED INTENSITY CONDITIONING CHEMOTHERAPY
     Route: 065
  6. ACYCLOVIR [Concomitant]
     Active Substance: ACYCLOVIR
     Indication: Prophylaxis
     Dosage: FOR MINIMUM OF 3 MONTHS FOLLOWING TRANSPLANT
     Route: 065

REACTIONS (2)
  - Post transplant lymphoproliferative disorder [Fatal]
  - Epstein-Barr virus infection reactivation [Fatal]
